FAERS Safety Report 5564522-2 (Version None)
Quarter: 2007Q4

REPORT INFORMATION
  Report Type: 
  Country: None (occurrence: None)
  Receive Date: 20071212
  Receipt Date: 20071127
  Transmission Date: 20080405
  Serious: Yes (Other)
  Sender: FDA-Public Use
  Company Number: 2007S1012509

PATIENT
  Age: 79 Year

DRUGS (15)
  1. CIPROFLOXACIN [Suspect]
     Indication: LOCALISED INFECTION
     Dosage: 50 MG; TWICE A DAY; ORAL
     Route: 048
     Dates: start: 20071018, end: 20071025
  2. ADIZEM [Concomitant]
  3. ASPIRIN [Concomitant]
  4. BISOPROLOL [Concomitant]
  5. CLOTRIMAZOLE [Concomitant]
  6. CITALOPRAM HYDROBROMIDE [Concomitant]
  7. ENOXAPARIN SODIUM [Concomitant]
  8. FUROSEMIDE [Concomitant]
  9. GABAPENTIN [Concomitant]
  10. MIXTARD HUMAN 70/30 [Concomitant]
  11. OMEPRAZOLE [Concomitant]
  12. OXYCONTIN [Concomitant]
  13. OXYNORM [Concomitant]
  14. ACETAMINOPHEN [Concomitant]
  15. SIMVASTATIN [Concomitant]

REACTIONS (2)
  - ERYTHEMA ANNULARE [None]
  - ERYTHEMA MULTIFORME [None]
